FAERS Safety Report 4650874-4 (Version None)
Quarter: 2005Q2

REPORT INFORMATION
  Report Type: 
  Country: None (occurrence: None)
  Receive Date: 20050503
  Receipt Date: 20050415
  Transmission Date: 20051028
  Serious: Yes (Disabling)
  Sender: FDA-Public Use
  Company Number: DK-JNJFOC-20050401491

PATIENT
  Age: 39 Year
  Sex: Female

DRUGS (11)
  1. REMICADE [Suspect]
     Route: 042
  2. REMICADE [Suspect]
     Route: 042
  3. REMICADE [Suspect]
     Route: 042
  4. REMICADE [Suspect]
     Indication: ARTHRITIS
     Route: 042
  5. NEXIUM [Concomitant]
  6. VENTOLIN [Concomitant]
     Dosage: TABLET AND SPRAY FORMULA
  7. SERETIDE [Concomitant]
  8. SERETIDE [Concomitant]
  9. METHOTREXATE [Concomitant]
  10. DOLOL [Concomitant]
  11. PAMOL [Concomitant]

REACTIONS (1)
  - SQUAMOUS CELL CARCINOMA [None]
